FAERS Safety Report 8188642-1 (Version None)
Quarter: 2012Q1

REPORT INFORMATION
  Report Type: 
  Country: None (occurrence: None)
  Receive Date: 20120306
  Receipt Date: 20120208
  Transmission Date: 20120608
  Serious: Yes (Hospitalization, Other)
  Sender: FDA-Public Use
  Company Number: US-ROCHE-794000

PATIENT
  Sex: Male
  Weight: 75.364 kg

DRUGS (1)
  1. ACCUTANE [Suspect]
     Indication: ACNE
     Route: 065
     Dates: start: 19890101, end: 19900101

REACTIONS (9)
  - DEPRESSION [None]
  - CROHN'S DISEASE [None]
  - INFLAMMATORY BOWEL DISEASE [None]
  - COLITIS ULCERATIVE [None]
  - DIVERTICULITIS [None]
  - SMALL INTESTINAL OBSTRUCTION [None]
  - SUICIDAL IDEATION [None]
  - IRRITABLE BOWEL SYNDROME [None]
  - SUICIDE ATTEMPT [None]
